FAERS Safety Report 5140904-8 (Version None)
Quarter: 2006Q4

REPORT INFORMATION
  Report Type: 
  Country: None (occurrence: None)
  Receive Date: 20060905
  Receipt Date: 20060509
  Transmission Date: 20070319
  Serious: No
  Sender: FDA-Public Use
  Company Number: 35161

PATIENT
  Age: 42 Year
  Sex: Male

DRUGS (4)
  1. NEVANAC [Suspect]
     Indication: PROPHYLAXIS
     Dates: start: 20051201, end: 20051208
  2. VIGAMOX [Concomitant]
  3. ECONOPRED PLUS [Concomitant]
  4. SYSTANE LUBRICANT EYE DROPS [Concomitant]

REACTIONS (1)
  - CORNEAL OPACITY [None]
